FAERS Safety Report 19901393 (Version 3)
Quarter: 2021Q4

REPORT INFORMATION
  Report Type: Spontaneous
  Country: US (occurrence: US)
  Receive Date: 20210930
  Receipt Date: 20211015
  Transmission Date: 20220304
  Serious: Yes (Other)
  Sender: FDA-Public Use
  Company Number: US-CELGENE-USA-20210906737

PATIENT
  Sex: Male
  Weight: 61.29 kg

DRUGS (2)
  1. REVLIMID [Suspect]
     Active Substance: LENALIDOMIDE
     Indication: Myelodysplastic syndrome
     Dosage: 10 MILLIGRAM
     Route: 048
     Dates: start: 20210708
  2. REVLIMID [Suspect]
     Active Substance: LENALIDOMIDE
     Indication: Leukaemia

REACTIONS (9)
  - Cardiac valve disease [Unknown]
  - Neck pain [Unknown]
  - Arthralgia [Unknown]
  - Pain in extremity [Unknown]
  - Back pain [Unknown]
  - Hypoacusis [Unknown]
  - Weight decreased [Unknown]
  - Hypoaesthesia [Unknown]
  - Paraesthesia [Unknown]

NARRATIVE: CASE EVENT DATE: 20210101
